FAERS Safety Report 7091434-8 (Version None)
Quarter: 2010Q4

REPORT INFORMATION
  Report Type: 
  Country: None (occurrence: None)
  Receive Date: 20101109
  Receipt Date: 20101103
  Transmission Date: 20110411
  Serious: Yes (Hospitalization, Other)
  Sender: FDA-Public Use
  Company Number: AU-ABBOTT-10P-008-0679652-00

PATIENT
  Sex: Male
  Weight: 69 kg

DRUGS (6)
  1. HUMIRA [Suspect]
     Indication: CROHN'S DISEASE
     Route: 058
     Dates: start: 20100709, end: 20100709
  2. HUMIRA [Suspect]
     Route: 058
     Dates: start: 20100723, end: 20100723
  3. HUMIRA [Suspect]
     Route: 058
     Dates: start: 20100801
  4. TRAMADOL HCL [Suspect]
     Indication: PRODUCT USED FOR UNKNOWN INDICATION
  5. IMURAN [Concomitant]
     Indication: PRODUCT USED FOR UNKNOWN INDICATION
  6. MAXALON [Concomitant]
     Indication: PRODUCT USED FOR UNKNOWN INDICATION

REACTIONS (6)
  - CONVULSION [None]
  - FATIGUE [None]
  - PALLOR [None]
  - PERIPHERAL COLDNESS [None]
  - TREMOR [None]
  - UNRESPONSIVE TO STIMULI [None]
